FAERS Safety Report 7508201-0 (Version None)
Quarter: 2011Q2

REPORT INFORMATION
  Report Type: 
  Country: None (occurrence: None)
  Receive Date: 20110527
  Receipt Date: 20110401
  Transmission Date: 20111010
  Serious: No
  Sender: FDA-Public Use
  Company Number: US-MYLANLABS-2011S1006997

PATIENT
  Age: 51 Year
  Sex: Female

DRUGS (2)
  1. LANSOPRAZOLE [Suspect]
     Route: 048
     Dates: start: 20110330, end: 20110331
  2. LANSOPRAZOLE [Suspect]
     Indication: GASTROOESOPHAGEAL REFLUX DISEASE
     Route: 048
     Dates: start: 20110324, end: 20110328

REACTIONS (2)
  - DRUG EFFECT DECREASED [None]
  - GASTROOESOPHAGEAL REFLUX DISEASE [None]
